FAERS Safety Report 19215651 (Version 12)
Quarter: 2022Q2

REPORT INFORMATION
  Report Type: Spontaneous
  Country: None (occurrence: GB)
  Receive Date: 20210505
  Receipt Date: 20220426
  Transmission Date: 20220721
  Serious: Yes (Other)
  Sender: FDA-Public Use
  Company Number: GB-BIO PRODUCTS LABORATORY LTD-2110214

PATIENT
  Sex: Female

DRUGS (12)
  1. HUMAN IMMUNOGLOBULIN G [Suspect]
     Active Substance: HUMAN IMMUNOGLOBULIN G
     Route: 042
  2. SOLIRIS [Suspect]
     Active Substance: ECULIZUMAB
     Route: 042
     Dates: start: 20100607
  3. ASPIRIN [Concomitant]
     Active Substance: ASPIRIN
     Route: 065
  4. FERRIPROX [Concomitant]
     Active Substance: DEFERIPRONE
     Route: 065
  5. FOLIC ACID [Concomitant]
     Active Substance: FOLIC ACID
     Route: 065
  6. BECLOMETHASONE\FORMOTEROL [Concomitant]
     Active Substance: BECLOMETHASONE\FORMOTEROL
     Route: 065
  7. KETOPROFEN [Concomitant]
     Active Substance: KETOPROFEN
     Route: 065
  8. LOSEC [Concomitant]
     Active Substance: OMEPRAZOLE
     Route: 065
  9. MORPHINE SULFATE [Concomitant]
     Active Substance: MORPHINE SULFATE
     Route: 065
  10. MORPHINE SULFATE [Concomitant]
     Active Substance: MORPHINE SULFATE
     Route: 065
  11. PROCHLORPERAZINE [Concomitant]
     Active Substance: PROCHLORPERAZINE
     Route: 065
  12. COVID-19 VACCINE NOS [Suspect]
     Active Substance: COVID-19 VACCINE NOS
     Route: 065

REACTIONS (37)
  - Bronchiectasis [Not Recovered/Not Resolved]
  - Device issue [Not Recovered/Not Resolved]
  - Dysphagia [Not Recovered/Not Resolved]
  - Pain [Not Recovered/Not Resolved]
  - Incorrect product administration duration [Not Recovered/Not Resolved]
  - Malaise [Recovering/Resolving]
  - Oesophageal spasm [Not Recovered/Not Resolved]
  - Wound [Not Recovered/Not Resolved]
  - Contusion [Not Recovered/Not Resolved]
  - Radiation oesophagitis [Unknown]
  - Oropharyngeal discomfort [Unknown]
  - Oxygen saturation decreased [Not Recovered/Not Resolved]
  - Poor venous access [Not Recovered/Not Resolved]
  - Dyspnoea exertional [Not Recovered/Not Resolved]
  - Dyspnoea [Not Recovered/Not Resolved]
  - Fatigue [Not Recovered/Not Resolved]
  - Arthralgia [Not Recovered/Not Resolved]
  - Headache [Not Recovered/Not Resolved]
  - Nausea [Unknown]
  - Bronchitis [Unknown]
  - Oropharyngeal pain [Not Recovered/Not Resolved]
  - Back pain [Not Recovered/Not Resolved]
  - Asthenia [Not Recovered/Not Resolved]
  - Enterostomy [Not Recovered/Not Resolved]
  - Transfusion [Unknown]
  - Knee arthroplasty [Unknown]
  - Lower respiratory tract infection [Not Recovered/Not Resolved]
  - Postoperative wound infection [Not Recovered/Not Resolved]
  - Swelling [Not Recovered/Not Resolved]
  - Body temperature increased [Not Recovered/Not Resolved]
  - Localised infection [Not Recovered/Not Resolved]
  - Wound abscess [Not Recovered/Not Resolved]
  - Scar [Unknown]
  - Paraesthesia [Unknown]
  - Erythema [Unknown]
  - Productive cough [Unknown]
  - Discharge [Unknown]

NARRATIVE: CASE EVENT DATE: 20180727
